FAERS Safety Report 7823660-1 (Version None)
Quarter: 2011Q4

REPORT INFORMATION
  Report Type: 
  Country: None (occurrence: None)
  Receive Date: 20111019
  Receipt Date: 20111019
  Transmission Date: 20120403
  Serious: Yes (Other)
  Sender: FDA-Public Use
  Company Number: None

PATIENT
  Age: 44 Year
  Sex: Male
  Weight: 90.718 kg

DRUGS (1)
  1. LEVOFLOXACIN [Suspect]
     Indication: BRONCHITIS
     Dosage: 500MG
     Route: 048
     Dates: start: 20111017, end: 20111017

REACTIONS (4)
  - ERYTHEMA [None]
  - SWOLLEN TONGUE [None]
  - HOT FLUSH [None]
  - PHARYNGEAL OEDEMA [None]
